FAERS Safety Report 7419840-X (Version None)
Quarter: 2011Q2

REPORT INFORMATION
  Report Type: 
  Country: None (occurrence: None)
  Receive Date: 20110413
  Receipt Date: 20110413
  Transmission Date: 20111010
  Serious: No
  Sender: FDA-Public Use
  Company Number: None

PATIENT
  Age: 70 Year
  Sex: Female
  Weight: 78.9259 kg

DRUGS (1)
  1. PROTONIX [Suspect]
     Indication: PEPTIC ULCER
     Dosage: 1 DAILY AM
     Dates: start: 20101021, end: 20110315

REACTIONS (6)
  - PAIN IN EXTREMITY [None]
  - BACK PAIN [None]
  - DYSSTASIA [None]
  - ARTHRALGIA [None]
  - MYALGIA [None]
  - FLANK PAIN [None]
